FAERS Safety Report 12880377 (Version 1)
Quarter: 2016Q4

REPORT INFORMATION
  Report Type: Spontaneous
  Country: US (occurrence: US)
  Receive Date: 20161025
  Receipt Date: 20161025
  Transmission Date: 20170207
  Serious: No
  Sender: FDA-Public Use
  Company Number: None

PATIENT

DRUGS (1)
  1. FENTANYL. [Suspect]
     Active Substance: FENTANYL

REACTIONS (4)
  - Drug prescribing error [None]
  - Hypopnoea [None]
  - Mental status changes [None]
  - Unresponsive to stimuli [None]
